FAERS Safety Report 6234237-6 (Version None)
Quarter: 2009Q2

REPORT INFORMATION
  Report Type: 
  Country: None (occurrence: None)
  Receive Date: 20090618
  Receipt Date: 20090610
  Transmission Date: 20091009
  Serious: Yes (Other)
  Sender: FDA-Public Use
  Company Number: SE-BAXTER-2009BH009821

PATIENT
  Age: 59 Year
  Sex: Female

DRUGS (2)
  1. ENDOXAN BAXTER [Suspect]
     Indication: BREAST CANCER
     Route: 065
     Dates: end: 20041101
  2. CYTOSTATICS [Suspect]
     Indication: BREAST CANCER
     Route: 065
     Dates: end: 20041101

REACTIONS (2)
  - GASTRITIS [None]
  - MYOCARDIAL INFARCTION [None]
